FAERS Safety Report 11198340 (Version 4)
Quarter: 2016Q1

REPORT INFORMATION
  Report Type: Spontaneous
  Country: JP (occurrence: JP)
  Receive Date: 20150618
  Receipt Date: 20160323
  Transmission Date: 20160525
  Serious: Yes (Hospitalization)
  Sender: FDA-Public Use
  Company Number: JP-AMGEN-JPNOT2015058459

PATIENT
  Age: 29 Year
  Sex: Female

DRUGS (28)
  1. DEXAMETHASONE. [Concomitant]
     Active Substance: DEXAMETHASONE
     Indication: METASTASES TO LYMPH NODES
  2. DEXART [Concomitant]
     Active Substance: DEXAMETHASONE SODIUM PHOSPHATE
     Indication: METASTASES TO LYMPH NODES
  3. RANMARK [Suspect]
     Active Substance: DENOSUMAB
     Indication: PRODUCT USED FOR UNKNOWN INDICATION
     Dosage: UNK
     Route: 065
     Dates: start: 20130318, end: 20131126
  4. ZOMETA [Suspect]
     Active Substance: ZOLEDRONIC ACID
     Indication: METASTASES TO LYMPH NODES
  5. FARMORUBICIN-RTU [Concomitant]
     Indication: BREAST CANCER
     Dosage: UNK
     Route: 065
     Dates: start: 20111206, end: 20120417
  6. FARMORUBICIN-RTU [Concomitant]
     Indication: METASTASES TO BONE
  7. ALOXI [Concomitant]
     Active Substance: PALONOSETRON HYDROCHLORIDE
     Indication: BREAST CANCER
     Dosage: UNK
     Route: 042
     Dates: start: 20111206, end: 20120417
  8. GRANISETRON [Concomitant]
     Active Substance: GRANISETRON
     Indication: BREAST CANCER
     Dosage: 3 MG, UNK
     Route: 042
     Dates: end: 20120731
  9. DOCETAXEL. [Concomitant]
     Active Substance: DOCETAXEL
     Indication: METASTASES TO BONE
  10. DEXART [Concomitant]
     Active Substance: DEXAMETHASONE SODIUM PHOSPHATE
     Indication: BREAST CANCER
     Dosage: 6.6MG (2ML)/TIME
     Route: 042
     Dates: start: 20111206, end: 20120731
  11. CALCIO 500+D [Concomitant]
     Indication: METASTASES TO BONE
  12. DEXAMETHASONE. [Concomitant]
     Active Substance: DEXAMETHASONE
     Indication: BREAST CANCER
     Dosage: 0.5 MG, BID
     Route: 048
     Dates: start: 20111206, end: 20120804
  13. CALCIO 500+D [Concomitant]
     Indication: BREAST CANCER
     Dosage: UNK
     Route: 042
     Dates: start: 20111206, end: 20120731
  14. ALOXI [Concomitant]
     Active Substance: PALONOSETRON HYDROCHLORIDE
     Indication: METASTASES TO LYMPH NODES
  15. DOCETAXEL. [Concomitant]
     Active Substance: DOCETAXEL
     Indication: METASTASES TO LYMPH NODES
  16. ZOMETA [Suspect]
     Active Substance: ZOLEDRONIC ACID
     Indication: METASTASES TO BONE
  17. ENDOXAN                            /00021101/ [Concomitant]
     Active Substance: CYCLOPHOSPHAMIDE
     Indication: BREAST CANCER
     Dosage: UNK
     Route: 042
     Dates: start: 20111206, end: 20120417
  18. ENDOXAN                            /00021101/ [Concomitant]
     Active Substance: CYCLOPHOSPHAMIDE
     Indication: METASTASES TO BONE
  19. GRANISETRON [Concomitant]
     Active Substance: GRANISETRON
     Indication: METASTASES TO BONE
  20. DOCETAXEL. [Concomitant]
     Active Substance: DOCETAXEL
     Indication: BREAST CANCER
     Dosage: UNK
     Route: 065
     Dates: start: 20110529, end: 20120731
  21. DEXAMETHASONE. [Concomitant]
     Active Substance: DEXAMETHASONE
     Indication: METASTASES TO BONE
  22. ALOXI [Concomitant]
     Active Substance: PALONOSETRON HYDROCHLORIDE
     Indication: METASTASES TO BONE
  23. FARMORUBICIN-RTU [Concomitant]
     Indication: METASTASES TO LYMPH NODES
  24. ENDOXAN                            /00021101/ [Concomitant]
     Active Substance: CYCLOPHOSPHAMIDE
     Indication: METASTASES TO LYMPH NODES
  25. ZOMETA [Suspect]
     Active Substance: ZOLEDRONIC ACID
     Indication: BREAST CANCER
     Dosage: 4 MG, 5ML, TOTAL 4MG 16TIMES
     Route: 042
     Dates: start: 20120924, end: 20130218
  26. DEXART [Concomitant]
     Active Substance: DEXAMETHASONE SODIUM PHOSPHATE
     Indication: METASTASES TO BONE
  27. CALCIO 500+D [Concomitant]
     Indication: METASTASES TO LYMPH NODES
  28. GRANISETRON [Concomitant]
     Active Substance: GRANISETRON
     Indication: METASTASES TO LYMPH NODES

REACTIONS (1)
  - Osteonecrosis of jaw [Recovered/Resolved with Sequelae]

NARRATIVE: CASE EVENT DATE: 20130318
